FAERS Safety Report 19214415 (Version 2)
Quarter: 2021Q2

REPORT INFORMATION
  Report Type: Report from Study
  Country: None (occurrence: IL)
  Receive Date: 20210505
  Receipt Date: 20210507
  Transmission Date: 20210717
  Serious: Yes (Other)
  Sender: FDA-Public Use
  Company Number: IL-ABBVIE-21K-082-3888738-00

PATIENT
  Age: 70 Year
  Sex: Male
  Weight: 89 kg

DRUGS (18)
  1. VENETOCLAX. [Suspect]
     Active Substance: VENETOCLAX
     Route: 048
     Dates: start: 20210210, end: 20210216
  2. RITUXIMAB. [Suspect]
     Active Substance: RITUXIMAB
     Indication: CHRONIC LYMPHOCYTIC LEUKAEMIA
     Dosage: CYCLE ONE
     Route: 065
     Dates: start: 20210303, end: 20210303
  3. RITUXIMAB. [Suspect]
     Active Substance: RITUXIMAB
     Dosage: CYCLE TWO
     Route: 065
     Dates: start: 20210331, end: 20210331
  4. VENETOCLAX. [Suspect]
     Active Substance: VENETOCLAX
     Route: 048
     Dates: start: 20210331
  5. VENETOCLAX. [Suspect]
     Active Substance: VENETOCLAX
     Indication: CHRONIC LYMPHOCYTIC LEUKAEMIA
     Dosage: RAMPUP
     Route: 048
     Dates: start: 20210127, end: 20210202
  6. SPIRIVA [Concomitant]
     Active Substance: TIOTROPIUM BROMIDE MONOHYDRATE
     Indication: CHRONIC OBSTRUCTIVE PULMONARY DISEASE
     Dates: start: 20160922
  7. TRITACE [Concomitant]
     Active Substance: RAMIPRIL
     Indication: HYPERTENSION
     Dates: start: 20201112
  8. VENETOCLAX. [Suspect]
     Active Substance: VENETOCLAX
     Dosage: INTERRUPTION DUE TO ADVERSE EVENT
     Route: 048
     Dates: start: 20210224, end: 20210303
  9. RITUXIMAB. [Suspect]
     Active Substance: RITUXIMAB
     Dosage: CYCLE THREE
     Route: 065
     Dates: start: 20210428, end: 20210428
  10. CARDILOC [Concomitant]
     Active Substance: BISOPROLOL FUMARATE
     Indication: HYPERTENSION
     Dates: start: 20201116
  11. STATOR [Concomitant]
     Indication: BLOOD CHOLESTEROL INCREASED
     Dates: start: 20201112
  12. VENTOLIN [Concomitant]
     Active Substance: ALBUTEROL SULFATE
     Indication: CHRONIC OBSTRUCTIVE PULMONARY DISEASE
     Dates: start: 20160922
  13. ZOVIRAX [Concomitant]
     Active Substance: ACYCLOVIR
     Indication: ANTIVIRAL PROPHYLAXIS
     Dates: start: 20210303
  14. ALLOPURINOL. [Concomitant]
     Active Substance: ALLOPURINOL
     Indication: PROPHYLAXIS
     Dates: start: 20210303, end: 20210303
  15. IBRUTINIB [Suspect]
     Active Substance: IBRUTINIB
     Indication: CHRONIC LYMPHOCYTIC LEUKAEMIA
     Dosage: TREATMENT COMPLETION
     Route: 065
     Dates: start: 20210127, end: 20210224
  16. VENETOCLAX. [Suspect]
     Active Substance: VENETOCLAX
     Dosage: RAMPUP
     Route: 048
     Dates: start: 20210203, end: 20210209
  17. VENETOCLAX. [Suspect]
     Active Substance: VENETOCLAX
     Dosage: RAMPUP
     Route: 048
     Dates: start: 20210217, end: 20210223
  18. EZECOR [Concomitant]
     Indication: BLOOD CHOLESTEROL INCREASED
     Dates: start: 20201112

REACTIONS (1)
  - Hepatic enzyme abnormal [Recovered/Resolved]

NARRATIVE: CASE EVENT DATE: 20210303
